FAERS Safety Report 13278158 (Version 1)
Quarter: 2017Q1

REPORT INFORMATION
  Report Type: Spontaneous
  Country: US (occurrence: US)
  Receive Date: 20170228
  Receipt Date: 20170228
  Transmission Date: 20170428
  Serious: No
  Sender: FDA-Public Use
  Company Number: US-LNK INTERNATIONAL, INC.-1063688

PATIENT
  Age: 81 Year
  Sex: Female

DRUGS (1)
  1. ACETAMINOPHEN 325 MG, GUAIFENESIN 200 MG, PHENYLEPHRINE HCL 5 MG [Suspect]
     Active Substance: ACETAMINOPHEN\GUAIFENESIN\PHENYLEPHRINE HYDROCHLORIDE

REACTIONS (1)
  - Drug ineffective [None]
